FAERS Safety Report 15005562 (Version 1)
Quarter: 2018Q2

REPORT INFORMATION
  Report Type: Spontaneous
  Country: US (occurrence: US)
  Receive Date: 20180521
  Receipt Date: 20180521
  Transmission Date: 20180711
  Serious: Yes (Hospitalization)
  Sender: FDA-Public Use
  Company Number: None

PATIENT
  Age: 53 Year
  Sex: Female
  Weight: 74.2 kg

DRUGS (8)
  1. PAP [Concomitant]
  2. AMLODIPINE [Concomitant]
     Active Substance: AMLODIPINE BESYLATE
  3. INDERAL [Concomitant]
     Active Substance: PROPRANOLOL HYDROCHLORIDE
  4. ZOFRAN [Concomitant]
     Active Substance: ONDANSETRON HYDROCHLORIDE
  5. ZANAFLEX [Concomitant]
     Active Substance: TIZANIDINE HYDROCHLORIDE
  6. OXYCODONE IR [Suspect]
     Active Substance: OXYCODONE
     Indication: ARTHRALGIA
     Dosage: CHRONIC
     Route: 048
  7. ELIQUIS [Concomitant]
     Active Substance: APIXABAN
  8. PAZEO [Concomitant]
     Active Substance: OLOPATADINE HYDROCHLORIDE

REACTIONS (6)
  - Hypoxia [None]
  - Extra dose administered [None]
  - Acute respiratory failure [None]
  - Accidental overdose [None]
  - Aspiration [None]
  - Hypercapnia [None]

NARRATIVE: CASE EVENT DATE: 20180213
